FAERS Safety Report 4349694-X (Version None)
Quarter: 2004Q2

REPORT INFORMATION
  Report Type: 
  Country: None (occurrence: None)
  Receive Date: 20040426
  Receipt Date: 20031222
  Transmission Date: 20050107
  Serious: Yes (Other)
  Sender: FDA-Public Use
  Company Number: 2003116784

PATIENT
  Age: 42 Year
  Sex: Female

DRUGS (2)
  1. ZITHROMAX [Suspect]
     Indication: SINUSITIS
     Dosage: 250 MG (DAILY), ORAL
     Route: 048
  2. ORAL CONTRACEPTIVE NOS (ORAL CONTRACEPTIVE NOS) [Concomitant]

REACTIONS (3)
  - BLEPHARITIS [None]
  - EYELID DISORDER [None]
  - STEVENS-JOHNSON SYNDROME [None]
